FAERS Safety Report 7768232-2 (Version None)
Quarter: 2011Q3

REPORT INFORMATION
  Report Type: 
  Country: None (occurrence: None)
  Receive Date: 20110922
  Receipt Date: 20110912
  Transmission Date: 20111222
  Serious: Yes (Hospitalization)
  Sender: FDA-Public Use
  Company Number: DE-GENENTECH-324433

PATIENT
  Sex: Female
  Weight: 65 kg

DRUGS (10)
  1. DOXORUBICIN HCL [Suspect]
     Indication: LYMPHOMA
     Dosage: 50 MG/M2, QAM
     Route: 042
     Dates: start: 20110819
  2. RITUXIMAB [Suspect]
     Indication: LYMPHOMA
     Dosage: 700 MG, QAM
     Route: 042
     Dates: start: 20110818
  3. VINCRISTINE [Suspect]
     Indication: LYMPHOMA
     Dosage: 2 MG, QAM
     Route: 042
     Dates: start: 20110819
  4. MIRTAZAPINE [Concomitant]
     Indication: PRODUCT USED FOR UNKNOWN INDICATION
     Dosage: UNK
  5. PREDNISONE [Suspect]
     Indication: LYMPHOMA
     Dosage: 100 MG, QAM
     Route: 048
     Dates: start: 20110819
  6. DIAZEPAM [Concomitant]
     Indication: PRODUCT USED FOR UNKNOWN INDICATION
     Dosage: UNK
  7. COLESTYRAMIN [Concomitant]
     Indication: PRODUCT USED FOR UNKNOWN INDICATION
     Dosage: UNK
  8. CYCLOPHOSPHAMIDE [Suspect]
     Indication: LYMPHOMA
     Dosage: 750 MG/M2, QAM
     Route: 042
     Dates: start: 20110819
  9. SEROQUEL [Concomitant]
     Indication: PRODUCT USED FOR UNKNOWN INDICATION
     Dosage: UNK
  10. BISOPROLOL FUMARATE [Concomitant]
     Indication: PRODUCT USED FOR UNKNOWN INDICATION
     Dosage: UNK

REACTIONS (7)
  - VOMITING [None]
  - NAUSEA [None]
  - LEUKOPENIA [None]
  - SYNCOPE [None]
  - HYPONATRAEMIA [None]
  - HYPOKALAEMIA [None]
  - DIARRHOEA [None]
